FAERS Safety Report 8113692-0 (Version None)
Quarter: 2012Q1

REPORT INFORMATION
  Report Type: 
  Country: None (occurrence: None)
  Receive Date: 20120203
  Receipt Date: 20120120
  Transmission Date: 20120608
  Serious: Yes (Other)
  Sender: FDA-Public Use
  Company Number: CN-BAUSCH-2011BL009048

PATIENT
  Age: 67 Year
  Sex: Female

DRUGS (9)
  1. GLYBURIDE [Concomitant]
  2. VANCOMYCIN [Suspect]
     Indication: ENDOPHTHALMITIS
     Route: 047
  3. METFORMIN HCL [Concomitant]
  4. GENTAMICIN [Suspect]
     Indication: ENDOPHTHALMITIS
     Route: 047
  5. CIPROFLOXACIN [Concomitant]
     Indication: ENDOPHTHALMITIS
  6. HYDROCHLOROTHIAZIDE [Concomitant]
  7. VANCOMYCIN [Concomitant]
     Route: 042
  8. AMILORIDE HYDROCHLORIDE [Concomitant]
  9. AMIKARIN [Concomitant]
     Route: 042

REACTIONS (1)
  - RENAL FAILURE ACUTE [None]
